FAERS Safety Report 8542528-9 (Version None)
Quarter: 2012Q3

REPORT INFORMATION
  Report Type: 
  Country: None (occurrence: None)
  Receive Date: 20120726
  Receipt Date: 20120720
  Transmission Date: 20120928
  Serious: Yes (Disabling)
  Sender: FDA-Public Use
  Company Number: GB-GILEAD-2011-0048184

PATIENT
  Sex: Male

DRUGS (5)
  1. ALENDRONATE SODIUM [Concomitant]
     Indication: OSTEOPOROSIS
     Dosage: UNK
     Route: 048
     Dates: start: 20111204
  2. HEPSERA [Suspect]
     Dosage: 10MG PER DAY
     Route: 048
     Dates: start: 20031127, end: 20111204
  3. LAMIVUDINE [Concomitant]
     Indication: HEPATITIS B
     Dosage: 100MG PER DAY
     Route: 048
     Dates: start: 20020520, end: 20111204
  4. HEPSERA [Suspect]
     Indication: HEPATITIS B
     Dosage: 10 MG, QD
     Route: 048
     Dates: start: 20031127, end: 20111204
  5. ALENDRONATE SODIUM [Concomitant]
     Route: 048
     Dates: end: 20111204

REACTIONS (4)
  - BETA 2 MICROGLOBULIN URINE INCREASED [None]
  - BLOOD PHOSPHORUS DECREASED [None]
  - ARTHRALGIA [None]
  - FANCONI SYNDROME ACQUIRED [None]
